FAERS Safety Report 15098501 (Version 1)
Quarter: 2018Q3

REPORT INFORMATION
  Report Type: Spontaneous
  Country: IT (occurrence: IT)
  Receive Date: 20180702
  Receipt Date: 20180702
  Transmission Date: 20181010
  Serious: Yes (Other)
  Sender: FDA-Public Use
  Company Number: IT-TEVA-2018-IT-917023

PATIENT
  Age: 66 Year
  Sex: Female

DRUGS (11)
  1. LEVOFLOXACIN. [Suspect]
     Active Substance: LEVOFLOXACIN
     Indication: CHRONIC OBSTRUCTIVE PULMONARY DISEASE
     Dosage: 500 MILLIGRAM DAILY;
     Route: 048
     Dates: start: 20171227, end: 20171227
  2. TRULICITY 1.5 MG SOLUTION FOR INJECTION IN PRE?FILLED PEN [Concomitant]
     Route: 065
  3. ACIDO ACETILSALICILICO TEVA ITALIA 100 MG COMPRESSE GASTRORESISTENTI [Concomitant]
  4. CLENIL 800 MICROGRAMMI SOSPENSIONE PER NEBULIZZATORE [Concomitant]
     Route: 065
  5. EUTIROX 125 MICROGRAMMI COMPRESSE [Concomitant]
     Route: 065
  6. PANTOPRAZOLO ZENTIVA ITALIA [Concomitant]
     Route: 065
  7. FLUTIFORMO [Concomitant]
     Route: 065
  8. LASIX [Concomitant]
     Active Substance: FUROSEMIDE
  9. FLUIMUCIL 300 MG/3 ML SOLUZIONE PER NEBULIZZATORE [Concomitant]
     Route: 065
  10. ICOMB 5 MG/5 MG CAPSULE RIGIDE [Concomitant]
     Route: 065
  11. METFORMINA MYLAN ITALIA 1000 MG, COMPRESSE RIVESTITE CON FILM [Concomitant]

REACTIONS (5)
  - Cyanosis [Recovering/Resolving]
  - Lip oedema [Recovering/Resolving]
  - Dysphonia [Recovering/Resolving]
  - Dyspnoea [Recovering/Resolving]
  - Face oedema [Recovering/Resolving]

NARRATIVE: CASE EVENT DATE: 20171227
